FAERS Safety Report 6710874 (Version 2)
Quarter: 2015Q3

REPORT INFORMATION
  Report Type: Spontaneous
  Country: US (occurrence: US)
  Receive Date: 20080725
  Receipt Date: 20150803
  Transmission Date: 20151125
  Serious: Yes (Other)
  Sender: FDA-Public Use
  Company Number: US-GILEAD-2008-0017353

PATIENT
  Age: 80 Year
  Sex: Female
  Weight: 74.84 kg

DRUGS (15)
  1. FLOVENT HFA [Concomitant]
     Active Substance: FLUTICASONE PROPIONATE
     Dosage: AS DIRECTED
     Route: 055
  2. FUROSEMIDE. [Concomitant]
     Active Substance: FUROSEMIDE
     Route: 048
  3. XOPENEX HFA [Concomitant]
     Active Substance: LEVALBUTEROL TARTRATE
     Dosage: AS DIRECTED
  4. SULFAMETHOXAZOLE AND TRIMETHOPRIM [Concomitant]
     Active Substance: SULFAMETHOXAZOLE\TRIMETHOPRIM
     Route: 048
  5. SYNTHROID [Concomitant]
     Active Substance: LEVOTHYROXINE SODIUM
     Route: 048
  6. KLOR-CON M20 [Concomitant]
     Active Substance: POTASSIUM CHLORIDE
     Route: 048
  7. RITUXAN [Concomitant]
     Active Substance: RITUXIMAB
  8. XALATAN 0.005% EYE DROPS [Concomitant]
     Dosage: 1 DROP TO EACH AFFECTED EYE
     Route: 047
  9. TOPROL XL [Concomitant]
     Active Substance: METOPROLOL SUCCINATE
     Route: 048
  10. MACROBID [Concomitant]
     Active Substance: NITROFURANTOIN\NITROFURANTOIN MONOHYDRATE
     Route: 048
  11. LETAIRIS [Suspect]
     Active Substance: AMBRISENTAN
     Indication: PULMONARY ARTERIAL HYPERTENSION
     Route: 048
     Dates: start: 20080401, end: 20080428
  12. ESOMEPRAZOLE MAGNESIUM. [Concomitant]
     Active Substance: ESOMEPRAZOLE MAGNESIUM
     Route: 048
  13. COUMADIN [Concomitant]
     Active Substance: WARFARIN SODIUM
     Route: 048
  14. MURO 128 5% EYE DROPS [Concomitant]
     Dosage: ONE DROP IN EACH EYE
     Route: 047
  15. OXYGEN. [Concomitant]
     Active Substance: OXYGEN
     Route: 055

REACTIONS (1)
  - Dyspnoea [Recovered/Resolved]

NARRATIVE: CASE EVENT DATE: 20080407
